FAERS Safety Report 9752168 (Version 1)
Quarter: 2013Q4

REPORT INFORMATION
  Report Type: Spontaneous
  Country: US (occurrence: None)
  Receive Date: 20131211
  Receipt Date: 20131211
  Transmission Date: 20140711
  Serious: Yes (Hospitalization)
  Sender: FDA-Public Use
  Company Number: None

PATIENT
  Age: 73 Year
  Sex: Female
  Weight: 45.81 kg

DRUGS (1)
  1. HALAVEN [Suspect]
     Indication: CERVIX CARCINOMA
     Dosage: 1.4 MG D1/D8 Q 21 DAYS, D1 D8 Q 21 DAYS, INTRAVENOUS
     Route: 042
     Dates: start: 20130507, end: 20131125

REACTIONS (2)
  - Haematuria [None]
  - Cystitis [None]
